FAERS Safety Report 5381407-5 (Version None)
Quarter: 2007Q3

REPORT INFORMATION
  Report Type: 
  Country: None (occurrence: None)
  Receive Date: 20070709
  Receipt Date: 20070625
  Transmission Date: 20080115
  Serious: Yes (Hospitalization)
  Sender: FDA-Public Use
  Company Number: FR-JNJFOC-20070701280

PATIENT
  Age: 19 Year
  Sex: Female

DRUGS (10)
  1. IBUPROFEN [Suspect]
     Indication: PHARYNGOLARYNGEAL PAIN
     Route: 048
  2. PARACETAMOL [Suspect]
     Route: 049
  3. PARACETAMOL [Suspect]
     Indication: PHARYNGOLARYNGEAL PAIN
     Route: 049
  4. FELDENE [Suspect]
     Indication: PHARYNGOLARYNGEAL PAIN
     Route: 048
  5. AMOXICILLIN TRIHYDRATE [Suspect]
     Indication: PHARYNGOLARYNGEAL PAIN
     Route: 048
  6. TETRAZEPAM [Suspect]
     Indication: PHARYNGOLARYNGEAL PAIN
     Route: 048
  7. MAGNE B6 [Concomitant]
     Indication: ANXIETY
  8. STRESAM [Concomitant]
     Indication: ANXIETY
  9. TANGANIL [Concomitant]
     Indication: ANXIETY
  10. EUPHYTOSE [Concomitant]
     Indication: ANXIETY

REACTIONS (1)
  - RASH MACULO-PAPULAR [None]
